FAERS Safety Report 13950968 (Version 1)
Quarter: 2017Q3

REPORT INFORMATION
  Report Type: Spontaneous
  Country: US (occurrence: US)
  Receive Date: 20170908
  Receipt Date: 20170908
  Transmission Date: 20171128
  Serious: Yes (Other)
  Sender: FDA-Public Use
  Company Number: US-ROCHE-1133022

PATIENT
  Sex: Female

DRUGS (1)
  1. RITUXAN [Suspect]
     Active Substance: RITUXIMAB
     Indication: EXTRANODAL MARGINAL ZONE B-CELL LYMPHOMA (MALT TYPE)
     Route: 065
     Dates: start: 19980527

REACTIONS (9)
  - Fatigue [Recovering/Resolving]
  - Hypertension [Unknown]
  - Hyperhidrosis [Recovering/Resolving]
  - Conjunctivitis [Unknown]
  - Tachycardia [Unknown]
  - Cough [Recovering/Resolving]
  - Nausea [Recovering/Resolving]
  - Extranodal marginal zone B-cell lymphoma (MALT type) [Unknown]
  - Abdominal pain lower [Not Recovered/Not Resolved]
